FAERS Safety Report 4285664-8 (Version None)
Quarter: 2004Q1

REPORT INFORMATION
  Report Type: 
  Country: None (occurrence: None)
  Receive Date: 20040202
  Receipt Date: 19980508
  Transmission Date: 20041129
  Serious: Yes (Life-Threatening, Hospitalization)
  Sender: FDA-Public Use
  Company Number: 110SDN9820238

PATIENT
  Sex: Female

DRUGS (3)
  1. OMNIPAQUE 140 [Suspect]
     Indication: ANEURYSM
     Dosage: 100 ML, SINGLE DOSE, I.A.
     Route: 013
     Dates: start: 19980227, end: 19980227
  2. FENTANYL [Concomitant]
  3. MIDAZOLAM HYDROCHLORIDE (VERSUS) [Concomitant]

REACTIONS (9)
  - AMNESIA [None]
  - ANEURYSM [None]
  - APNOEA [None]
  - BLINDNESS CORTICAL [None]
  - CONFUSIONAL STATE [None]
  - CONVULSION [None]
  - CYANOSIS [None]
  - HYPOAESTHESIA [None]
  - NAUSEA [None]
